FAERS Safety Report 21239366 (Version 1)
Quarter: 2022Q3

REPORT INFORMATION
  Report Type: Spontaneous
  Country: PL (occurrence: PL)
  Receive Date: 20220822
  Receipt Date: 20220822
  Transmission Date: 20221027
  Serious: Yes (Other)
  Sender: FDA-Public Use
  Company Number: PL-CMP PHARMA-2022CMP00020

PATIENT
  Age: 43 Year
  Sex: Male

DRUGS (1)
  1. TRIAMCINOLONE [Suspect]
     Active Substance: TRIAMCINOLONE
     Indication: Macular oedema
     Dosage: 4 MG/0.1 ML, EIGHT INJECTIONS DURING 4 YEAR FOLLOW-UP

REACTIONS (1)
  - Central serous chorioretinopathy [Recovered/Resolved]
